FAERS Safety Report 5923760-7 (Version None)
Quarter: 2008Q4

REPORT INFORMATION
  Report Type: 
  Country: None (occurrence: None)
  Receive Date: 20081020
  Receipt Date: 20081010
  Transmission Date: 20090506
  Serious: Yes (Hospitalization)
  Sender: FDA-Public Use
  Company Number: GB-ASTRAZENECA-2008GB01947

PATIENT
  Age: 24878 Day
  Sex: Male

DRUGS (5)
  1. OMEPRAZOLE [Suspect]
     Route: 048
     Dates: start: 19930101, end: 20081002
  2. ATORVASTATIN CALCIUM [Concomitant]
     Indication: BLOOD CHOLESTEROL INCREASED
     Dosage: (10MG AND 20MG TABLETS)
     Route: 048
  3. ATENOLOL [Concomitant]
     Indication: HYPERTENSION
     Dosage: STOPPED IN SEPTEMBER OR OCTOBER 2008
     Route: 048
     Dates: end: 20080101
  4. CO-AMILOZIDE [Concomitant]
     Dosage: STOPPED IN SEPTEMBER OR OCTOBER 2008
     Dates: end: 20080101
  5. MELOXICAM [Concomitant]

REACTIONS (2)
  - HYPOMAGNESAEMIA [None]
  - PARESIS [None]
